FAERS Safety Report 5236332-7 (Version None)
Quarter: 2007Q1

REPORT INFORMATION
  Report Type: 
  Country: None (occurrence: None)
  Receive Date: 20070209
  Receipt Date: 20070117
  Transmission Date: 20070707
  Serious: Yes (Disabling)
  Sender: FDA-Public Use
  Company Number: OSCN-NO 0701S-0037

PATIENT
  Age: 60 Year
  Sex: Male

DRUGS (1)
  1. OMNISCAN [Suspect]
     Indication: DRUG USE FOR UNKNOWN INDICATION
     Dosage: SINGLE DOSE , I.V.
     Dates: start: 20021212, end: 20021212

REACTIONS (1)
  - NEPHROGENIC FIBROSING DERMOPATHY [None]
